FAERS Safety Report 25309918 (Version 1)
Quarter: 2025Q2

REPORT INFORMATION
  Report Type: Spontaneous
  Country: US (occurrence: US)
  Receive Date: 20250514
  Receipt Date: 20250514
  Transmission Date: 20250717
  Serious: Yes (Hospitalization, Other)
  Sender: ALEXION PHARMACEUTICALS
  Company Number: US-AstraZeneca-CH-00866918A

PATIENT
  Age: 79 Year

DRUGS (2)
  1. WAINUA [Suspect]
     Active Substance: EPLONTERSEN
     Indication: Familial amyloidosis
     Dosage: 45 MILLIGRAM, QMONTH
  2. WAINUA [Suspect]
     Active Substance: EPLONTERSEN
     Indication: Polyneuropathy

REACTIONS (3)
  - Bladder disorder [Unknown]
  - Post procedural complication [Unknown]
  - Extra dose administered [Unknown]
